FAERS Safety Report 4479017-7 (Version None)
Quarter: 2004Q4

REPORT INFORMATION
  Report Type: 
  Country: None (occurrence: None)
  Receive Date: 20040923
  Receipt Date: 20040720
  Transmission Date: 20050328
  Serious: No
  Sender: FDA-Public Use
  Company Number: 207633

PATIENT
  Age: 30 Year
  Sex: Male

DRUGS (13)
  1. AVASTIN [Suspect]
     Indication: RENAL CELL CARCINOMA STAGE UNSPECIFIED
     Dosage: SEE IMAGE
     Route: 042
     Dates: start: 20040420
  2. AVASTIN [Suspect]
     Indication: RENAL CELL CARCINOMA STAGE UNSPECIFIED
     Dosage: SEE IMAGE
     Route: 042
     Dates: start: 20040427
  3. BENADRYL (DIHENHYDRAMINE HYDROCHLORIDE) [Concomitant]
  4. SENOKOT [Concomitant]
  5. REGLAN [Concomitant]
  6. NAPROXEN [Concomitant]
  7. PREVACID [Concomitant]
  8. VALPROIC ACID [Concomitant]
  9. MIRALAX [Concomitant]
  10. MILK OF MAGNESIA (MILK OF MAGNESIA) [Concomitant]
  11. PHENERGAN [Concomitant]
  12. DECADRON [Concomitant]
  13. METHADONE (MEHADONE HYDROCHLORIDE) [Concomitant]

REACTIONS (2)
  - EJACULATION DISORDER [None]
  - PRIAPISM [None]
